FAERS Safety Report 17842757 (Version 3)
Quarter: 2020Q2

REPORT INFORMATION
  Report Type: Spontaneous
  Country: JP (occurrence: JP)
  Receive Date: 20200530
  Receipt Date: 20200623
  Transmission Date: 20200714
  Serious: Yes (Death, Hospitalization, Other)
  Sender: FDA-Public Use
  Company Number: JP-VISTAPHARM, INC.-VER202005-001009

PATIENT
  Age: 80 Year
  Sex: Female

DRUGS (3)
  1. PREDNISOLONE. [Suspect]
     Active Substance: PREDNISOLONE
     Indication: RENAL VASCULITIS
     Dosage: 30 MG/DAY (0.6 MG/KG/DAY) REDUCED THE DOSE TO 10 MG/DAY
  2. PREDNISOLONE. [Suspect]
     Active Substance: PREDNISOLONE
     Dosage: 7.5 MG/DAY OVER 6 MONTHS
  3. METHYLPREDNISOLONE. [Suspect]
     Active Substance: METHYLPREDNISOLONE
     Indication: RENAL VASCULITIS
     Dosage: 500 MG/DAY
     Route: 042

REACTIONS (1)
  - Progressive multifocal leukoencephalopathy [Fatal]
